FAERS Safety Report 5731206-7 (Version None)
Quarter: 2008Q2

REPORT INFORMATION
  Report Type: 
  Country: None (occurrence: None)
  Receive Date: 20080507
  Receipt Date: 20080422
  Transmission Date: 20081010
  Serious: No
  Sender: FDA-Public Use
  Company Number: US-BOEHRINGER INGELHEIM GMBH, GERMANY-2008-BP-06309BP

PATIENT
  Sex: Female

DRUGS (8)
  1. MIRAPEX [Suspect]
     Indication: RESTLESS LEGS SYNDROME
     Route: 048
     Dates: start: 20080308
  2. NEXIUM [Concomitant]
  3. SPIRONOLACTONE [Concomitant]
  4. SYNTHROID [Concomitant]
  5. VYTORIN [Concomitant]
     Indication: BLOOD CHOLESTEROL INCREASED
  6. CLONIDINE [Concomitant]
  7. SINGULAIR [Concomitant]
     Indication: ASTHMA
  8. ESTRADIOL [Concomitant]

REACTIONS (2)
  - NOCTURIA [None]
  - WEIGHT INCREASED [None]
